FAERS Safety Report 18095084 (Version 5)
Quarter: 2021Q3

REPORT INFORMATION
  Report Type: Spontaneous
  Country: US (occurrence: US)
  Receive Date: 20200730
  Receipt Date: 20210817
  Transmission Date: 20211014
  Serious: No
  Sender: FDA-Public Use
  Company Number: US-AKCEA THERAPEUTICS-2020IS001170

PATIENT
  Age: 80 Year
  Sex: Female

DRUGS (4)
  1. TEGSEDI [Suspect]
     Active Substance: INOTERSEN SODIUM
     Indication: NEUROPATHY PERIPHERAL
     Route: 058
     Dates: start: 20191212
  2. TEGSEDI [Suspect]
     Active Substance: INOTERSEN SODIUM
     Route: 058
  3. TEGSEDI [Suspect]
     Active Substance: INOTERSEN SODIUM
     Route: 058
  4. ISSD (INTEGRATED SYRINGE SAFETY DEVICE) [Suspect]
     Active Substance: DEVICE

REACTIONS (17)
  - Fatigue [Recovered/Resolved]
  - Laboratory test abnormal [Unknown]
  - Injection site pruritus [Unknown]
  - Platelet count decreased [Unknown]
  - Blood count abnormal [Unknown]
  - Urine protein/creatinine ratio increased [Unknown]
  - Dry mouth [Not Recovered/Not Resolved]
  - Vomiting [Unknown]
  - Protein urine present [Unknown]
  - Middle insomnia [Not Recovered/Not Resolved]
  - Influenza like illness [Recovered/Resolved]
  - Blood creatinine abnormal [Unknown]
  - Pyrexia [Recovered/Resolved]
  - Urine leukocyte esterase positive [Unknown]
  - Injection site pain [Unknown]
  - Chills [Recovered/Resolved]
  - Herpes zoster [Unknown]

NARRATIVE: CASE EVENT DATE: 202004
